FAERS Safety Report 6260356-4 (Version None)
Quarter: 2009Q3

REPORT INFORMATION
  Report Type: 
  Country: None (occurrence: None)
  Receive Date: 20090708
  Receipt Date: 20090629
  Transmission Date: 20100115
  Serious: Yes (Hospitalization)
  Sender: FDA-Public Use
  Company Number: FR-ASTRAZENECA-2009SE03630

PATIENT
  Age: 10292 Day
  Sex: Female

DRUGS (4)
  1. TENORMIN [Suspect]
     Route: 048
     Dates: start: 20071018, end: 20071018
  2. CORVASAL [Suspect]
     Route: 048
     Dates: start: 20071018, end: 20071018
  3. IKOREL [Suspect]
     Route: 048
     Dates: start: 20071018, end: 20071018
  4. COUMADIN [Suspect]
     Route: 048
     Dates: start: 20071018, end: 20071018

REACTIONS (3)
  - ATRIOVENTRICULAR EXTRASYSTOLES [None]
  - BUNDLE BRANCH BLOCK RIGHT [None]
  - INTENTIONAL OVERDOSE [None]
